FAERS Safety Report 6867107-0 (Version None)
Quarter: 2010Q3

REPORT INFORMATION
  Report Type: 
  Country: None (occurrence: None)
  Receive Date: 20100722
  Receipt Date: 20100714
  Transmission Date: 20110219
  Serious: Yes (Other)
  Sender: FDA-Public Use
  Company Number: A0870428A

PATIENT
  Age: 60 Year
  Sex: Female

DRUGS (11)
  1. AVANDIA [Suspect]
     Dosage: 8MG PER DAY
     Route: 048
     Dates: start: 20050101
  2. INSULIN [Concomitant]
  3. LASIX [Concomitant]
  4. CAPTOPRIL [Concomitant]
  5. ASACOL [Concomitant]
  6. ALPHAGAN [Concomitant]
  7. AZOPT [Concomitant]
  8. VITAMINS [Concomitant]
  9. FISH OIL [Concomitant]
  10. FISH OIL [Concomitant]
  11. LIPITOR [Concomitant]

REACTIONS (3)
  - BALANCE DISORDER [None]
  - CEREBROVASCULAR ACCIDENT [None]
  - FLUID RETENTION [None]
